FAERS Safety Report 5454195-1 (Version None)
Quarter: 2007Q3

REPORT INFORMATION
  Report Type: 
  Country: None (occurrence: None)
  Receive Date: 20070917
  Receipt Date: 20070910
  Transmission Date: 20080115
  Serious: Yes (Other)
  Sender: FDA-Public Use
  Company Number: DE-SHR-DE-2007-034415

PATIENT

DRUGS (1)
  1. CAMPATH [Suspect]

REACTIONS (1)
  - CEREBRAL DISORDER [None]
